FAERS Safety Report 25705404 (Version 1)
Quarter: 2025Q3

REPORT INFORMATION
  Report Type: Spontaneous
  Country: US (occurrence: None)
  Receive Date: 20250819
  Receipt Date: 20250819
  Transmission Date: 20251020
  Serious: Yes (Death)
  Sender: FDA-CTU
  Company Number: None

PATIENT
  Age: 77 Year
  Sex: Male

DRUGS (1)
  1. PIRFENIDONE [Suspect]
     Active Substance: PIRFENIDONE
     Indication: Interstitial lung disease
     Dosage: FREQUENCY : 3 TIMES A DAY;?
     Route: 048
     Dates: start: 20240104, end: 20250729

REACTIONS (5)
  - Acute respiratory failure [None]
  - Pulmonary embolism [None]
  - Deep vein thrombosis [None]
  - Pancreatitis acute [None]
  - Hypertransaminasaemia [None]

NARRATIVE: CASE EVENT DATE: 20250729
